FAERS Safety Report 5554586-4 (Version None)
Quarter: 2007Q4

REPORT INFORMATION
  Report Type: 
  Country: None (occurrence: None)
  Receive Date: 20071213
  Receipt Date: 20070730
  Transmission Date: 20080405
  Serious: No
  Sender: FDA-Public Use
  Company Number: US-AMGEN-KDL236619

PATIENT
  Sex: Male

DRUGS (3)
  1. ENBREL [Suspect]
     Indication: RHEUMATOID ARTHRITIS
     Route: 058
     Dates: start: 20051030
  2. METHOTREXATE [Concomitant]
     Route: 058
     Dates: start: 19860101
  3. PLAQUENIL [Concomitant]
     Dates: start: 19900101

REACTIONS (3)
  - ABDOMINAL PAIN [None]
  - INFLUENZA LIKE ILLNESS [None]
  - RHEUMATOID ARTHRITIS [None]
